FAERS Safety Report 6624995-0 (Version None)
Quarter: 2010Q1

REPORT INFORMATION
  Report Type: 
  Country: None (occurrence: None)
  Receive Date: 20100310
  Receipt Date: 20090930
  Transmission Date: 20100710
  Serious: No
  Sender: FDA-Public Use
  Company Number: US-BIOGENIDEC-2009BI030315

PATIENT
  Age: 31 Year
  Sex: Female

DRUGS (3)
  1. AVONEX [Suspect]
     Indication: MULTIPLE SCLEROSIS
     Route: 030
     Dates: start: 20090730, end: 20090730
  2. AVONEX [Suspect]
     Route: 030
     Dates: start: 20090813, end: 20090813
  3. AVONEX [Suspect]
     Route: 030
     Dates: start: 20090924

REACTIONS (6)
  - INFLUENZA LIKE ILLNESS [None]
  - LYMPHADENOPATHY [None]
  - MUSCULAR WEAKNESS [None]
  - TREMOR [None]
  - UMBILICAL HERNIA REPAIR [None]
  - WHITE BLOOD CELL COUNT DECREASED [None]
